FAERS Safety Report 13888730 (Version 1)
Quarter: 2017Q3

REPORT INFORMATION
  Report Type: Spontaneous
  Country: US (occurrence: US)
  Receive Date: 20170821
  Receipt Date: 20170821
  Transmission Date: 20171127
  Serious: No
  Sender: FDA-Public Use
  Company Number: GXBR2017US000894

PATIENT
  Age: 40 Year
  Sex: Female

DRUGS (1)
  1. WARFARIN SODIUM TABLETS USP [Suspect]
     Active Substance: WARFARIN SODIUM
     Indication: EMBOLISM
     Route: 065

REACTIONS (2)
  - Alopecia [Unknown]
  - Hair texture abnormal [Unknown]
